FAERS Safety Report 25374375 (Version 3)
Quarter: 2025Q3

REPORT INFORMATION
  Report Type: Spontaneous
  Country: JP (occurrence: JP)
  Receive Date: 20250529
  Receipt Date: 20250910
  Transmission Date: 20251021
  Serious: Yes (Hospitalization, Other)
  Sender: AMGEN
  Company Number: JP-AMGEN-JPNSP2025102227

PATIENT
  Age: 62 Year
  Sex: Male
  Weight: 46 kg

DRUGS (16)
  1. IMDELLTRA [Suspect]
     Active Substance: TARLATAMAB-DLLE
     Indication: Small cell lung cancer extensive stage
     Dosage: 1 MILLIGRAM, QD, DRIP INFUSION
     Route: 040
     Dates: start: 20250520, end: 20250520
  2. IMDELLTRA [Suspect]
     Active Substance: TARLATAMAB-DLLE
     Route: 040
     Dates: start: 2025, end: 202507
  3. SITAGLIPTIN [Concomitant]
     Active Substance: SITAGLIPTIN
     Dates: start: 20250520
  4. Glufast od [Concomitant]
     Dates: start: 20250520
  5. VOGLIBOSE [Concomitant]
     Active Substance: VOGLIBOSE
     Dates: start: 20250520
  6. OXYCODONE [Concomitant]
     Active Substance: OXYCODONE
     Indication: Cancer pain
     Dosage: 60 MILLIGRAM, QD (10MG CAPSULE)
     Dates: start: 20250520
  7. LOXOPROFEN [Concomitant]
     Active Substance: LOXOPROFEN
     Dates: start: 20250520
  8. REBAMIPIDE [Concomitant]
     Active Substance: REBAMIPIDE
     Dates: start: 20250520
  9. MOSAPRIDE CITRATE [Concomitant]
     Active Substance: MOSAPRIDE CITRATE
     Dates: start: 20250520
  10. VONOPRAZAN FUMARATE [Concomitant]
     Active Substance: VONOPRAZAN FUMARATE
     Dates: start: 20250520
  11. SYMPROIC [Concomitant]
     Active Substance: NALDEMEDINE TOSYLATE
     Dates: start: 20250520
  12. INDACATEROL [Concomitant]
     Active Substance: INDACATEROL
     Dates: start: 20250520
  13. CALCIUM CARBONATE\CHOLECALCIFEROL\MAGNESIUM CARBONATE [Concomitant]
     Active Substance: CALCIUM CARBONATE\CHOLECALCIFEROL\MAGNESIUM CARBONATE
     Dates: start: 20250520
  14. DEXTROMETHORPHAN HYDROBROMIDE [Concomitant]
     Active Substance: DEXTROMETHORPHAN HYDROBROMIDE
     Dates: start: 20250520
  15. AMBROXOL HYDROCHLORIDE [Concomitant]
     Active Substance: AMBROXOL HYDROCHLORIDE
     Dates: start: 20250520
  16. FENTANYL [Concomitant]
     Active Substance: FENTANYL
     Indication: Cancer pain

REACTIONS (4)
  - Metastases to central nervous system [Unknown]
  - Immune effector cell-associated neurotoxicity syndrome [Recovering/Resolving]
  - Cytokine release syndrome [Recovering/Resolving]
  - Disease progression [Unknown]

NARRATIVE: CASE EVENT DATE: 20250501
